FAERS Safety Report 14724043 (Version 1)
Quarter: 2018Q2

REPORT INFORMATION
  Report Type: Spontaneous
  Country: GB (occurrence: GB)
  Receive Date: 20180405
  Receipt Date: 20180405
  Transmission Date: 20180711
  Serious: Yes (Hospitalization, Other)
  Sender: FDA-Public Use
  Company Number: GB-BRISTOL-MYERS SQUIBB COMPANY-BMS-2018-029705

PATIENT
  Sex: Female

DRUGS (3)
  1. PRADAXA [Suspect]
     Active Substance: DABIGATRAN ETEXILATE MESYLATE
     Indication: PRODUCT USED FOR UNKNOWN INDICATION
     Route: 065
  2. THYROXINE [Concomitant]
     Active Substance: LEVOTHYROXINE
     Indication: PRODUCT USED FOR UNKNOWN INDICATION
     Route: 065
  3. APIXABAN [Suspect]
     Active Substance: APIXABAN
     Indication: CEREBROVASCULAR ACCIDENT PROPHYLAXIS
     Dosage: 5 MG, BID
     Route: 048
     Dates: start: 20180124

REACTIONS (20)
  - Visual impairment [Unknown]
  - Burning sensation [Unknown]
  - Gait inability [Unknown]
  - Fatigue [Unknown]
  - Restlessness [Unknown]
  - Dysphonia [Unknown]
  - Headache [Unknown]
  - Musculoskeletal stiffness [Unknown]
  - Vein disorder [Unknown]
  - Malaise [Unknown]
  - Tinnitus [Unknown]
  - Body temperature increased [Unknown]
  - Suicidal ideation [Unknown]
  - Epistaxis [Unknown]
  - Limb deformity [Unknown]
  - Cerebrovascular accident [Unknown]
  - Hypoaesthesia [Unknown]
  - Cardiac disorder [Unknown]
  - Insomnia [Unknown]
  - Contraindicated product administered [Unknown]
